FAERS Safety Report 15643719 (Version 2)
Quarter: 2020Q1

REPORT INFORMATION
  Report Type: Spontaneous
  Country: BD (occurrence: BD)
  Receive Date: 20181121
  Receipt Date: 20200102
  Transmission Date: 20200409
  Serious: Yes (Other)
  Sender: FDA-Public Use
  Company Number: BD-JNJFOC-20181110023

PATIENT
  Age: 35 Year
  Sex: Male
  Weight: 53.7 kg

DRUGS (13)
  1. BEDAQUILINE [Suspect]
     Active Substance: BEDAQUILINE
     Indication: TUBERCULOSIS
     Route: 048
     Dates: start: 20170724
  2. PYRIDOXINE [Concomitant]
     Active Substance: PYRIDOXINE
     Indication: PROPHYLAXIS
     Route: 048
     Dates: start: 20170724
  3. BEDAQUILINE [Suspect]
     Active Substance: BEDAQUILINE
     Dosage: 3 DAYS/WEEK
     Route: 048
     Dates: end: 20180506
  4. LINEZOLID. [Suspect]
     Active Substance: LINEZOLID
     Indication: TUBERCULOSIS
     Dosage: 400 MG PO DAILY AND 3 DAYS/WEEK
     Route: 048
     Dates: start: 20170724, end: 20181107
  5. MOXIFLOXACIN. [Suspect]
     Active Substance: MOXIFLOXACIN
     Indication: TUBERCULOSIS
     Dosage: 400 MG PO DAILY AND 3 DAYS/WEEK
     Route: 048
     Dates: start: 20170724
  6. PYRAZINAMIDE. [Suspect]
     Active Substance: PYRAZINAMIDE
     Indication: TUBERCULOSIS
     Dosage: 400 MG PO DAILY AND 3 DAYS/WEEK
     Route: 048
     Dates: start: 20170724, end: 20180708
  7. CLOFAZIMINE [Suspect]
     Active Substance: CLOFAZIMINE
     Indication: TUBERCULOSIS
     Dosage: 400 MG PO DAILY AND 3 DAYS/WEEK
     Route: 048
     Dates: start: 20180521
  8. DISOPAN [Concomitant]
     Indication: SLEEP DISORDER
     Route: 048
     Dates: start: 20170724
  9. CYCLOSERINE. [Suspect]
     Active Substance: CYCLOSERINE
     Indication: TUBERCULOSIS
     Dosage: 400 MG PO DAILY AND 3 DAYS/WEEK
     Route: 048
     Dates: start: 20170724
  10. CYCLOSERINE. [Suspect]
     Active Substance: CYCLOSERINE
     Dosage: 3 DAYS /WEEK
     Route: 048
     Dates: start: 20181010
  11. ETHIONAMIDE [Suspect]
     Active Substance: ETHIONAMIDE
     Indication: TUBERCULOSIS
     Dosage: 400 MG PO DAILY AND 3 DAYS/WEEK
     Route: 048
     Dates: start: 20170724
  12. MECLIZINE [Concomitant]
     Active Substance: MECLIZINE HYDROCHLORIDE
     Indication: VOMITING
     Route: 048
     Dates: start: 20170724
  13. OMEPRAZOLE. [Concomitant]
     Active Substance: OMEPRAZOLE
     Indication: HYPERCHLORHYDRIA
     Route: 048
     Dates: start: 20170724

REACTIONS (3)
  - Intentional product use issue [Unknown]
  - Toxic neuropathy [Recovered/Resolved]
  - Off label use [Unknown]

NARRATIVE: CASE EVENT DATE: 201801
